FAERS Safety Report 19403389 (Version 1)
Quarter: 2021Q2

REPORT INFORMATION
  Report Type: Spontaneous
  Country: US (occurrence: US)
  Receive Date: 20210611
  Receipt Date: 20210611
  Transmission Date: 20210717
  Serious: Yes (Hospitalization)
  Sender: FDA-Public Use
  Company Number: US-MACLEODS PHARMACEUTICALS US LTD-MAC2021031399

PATIENT

DRUGS (5)
  1. CLINDAMYCIN. [Concomitant]
     Active Substance: CLINDAMYCIN
     Indication: IMPETIGO
     Dosage: UNK
     Route: 048
  2. ACYCLOVIR. [Suspect]
     Active Substance: ACYCLOVIR
     Dosage: UNK, RESUMED
     Route: 042
  3. ACYCLOVIR. [Suspect]
     Active Substance: ACYCLOVIR
     Indication: OPTIC NEURITIS
     Dosage: 200 MILLIGRAM, BID
     Route: 048
  4. ACYCLOVIR. [Suspect]
     Active Substance: ACYCLOVIR
     Indication: ENCEPHALITIS
     Dosage: 5 MILLIGRAM/KILOGRAM, QD
     Route: 042
  5. MUPIROCIN. [Concomitant]
     Active Substance: MUPIROCIN
     Indication: SKIN LESION
     Dosage: UNK, LOCAL APPLICATION
     Route: 061

REACTIONS (4)
  - Neurotoxicity [Recovered/Resolved]
  - Subdural haematoma [Recovered/Resolved]
  - Fall [Recovered/Resolved]
  - Seizure [Recovered/Resolved]
